FAERS Safety Report 24729605 (Version 1)
Quarter: 2024Q4

REPORT INFORMATION
  Report Type: Spontaneous
  Country: CA (occurrence: CA)
  Receive Date: 20241213
  Receipt Date: 20241213
  Transmission Date: 20250115
  Serious: Yes (Hospitalization)
  Sender: BOEHRINGER INGELHEIM
  Company Number: CA-BoehringerIngelheim-2024-BI-067810

PATIENT
  Age: 83 Year
  Sex: Female
  Weight: 53 kg

DRUGS (13)
  1. HYDROCHLOROTHIAZIDE\TELMISARTAN [Suspect]
     Active Substance: HYDROCHLOROTHIAZIDE\TELMISARTAN
     Indication: Hypertension
     Dosage: 1.0 DOSAGE FORMS
  2. PANTOPRAZOLE MAGNESIUM [Concomitant]
     Active Substance: PANTOPRAZOLE MAGNESIUM
     Indication: Product used for unknown indication
  3. CARDURA-2 TAB 2MG [Concomitant]
     Indication: Product used for unknown indication
  4. TEARS NATURALE II [Concomitant]
     Indication: Product used for unknown indication
     Dosage: DROPS OPHTHALMIC
     Route: 047
  5. VAGIFEM [Concomitant]
     Active Substance: ESTRADIOL
     Indication: Product used for unknown indication
  6. CODEINE CONTIN 50MG CONTROLLED RELEASE TAB [Concomitant]
     Indication: Product used for unknown indication
  7. ACTONEL [Concomitant]
     Active Substance: RISEDRONATE SODIUM
     Indication: Product used for unknown indication
     Dosage: TABLET (DELAYED-RELEASE)
  8. CRESTOR - 10MG [Concomitant]
     Indication: Product used for unknown indication
  9. VENTOLIN HFA [Concomitant]
     Active Substance: ALBUTEROL SULFATE
     Indication: Product used for unknown indication
     Dosage: METERED-DOSE (AEROSOL)
  10. JANUMET [Concomitant]
     Active Substance: METFORMIN HYDROCHLORIDE\SITAGLIPTIN PHOSPHATE
     Indication: Product used for unknown indication
  11. TRAZODONE [Concomitant]
     Active Substance: TRAZODONE HYDROCHLORIDE
     Indication: Product used for unknown indication
  12. KENALOG-40 INJECTION 40MG/ML [Concomitant]
     Indication: Product used for unknown indication
     Dosage: SUSPENSION INTRA-ARTICULAR
  13. CRANBERRY [Concomitant]
     Active Substance: CRANBERRY
     Indication: Product used for unknown indication

REACTIONS (4)
  - Nausea [Recovered/Resolved]
  - Vomiting [Recovered/Resolved]
  - Dehydration [Recovered/Resolved]
  - Electrolyte imbalance [Recovered/Resolved]
